FAERS Safety Report 19581363 (Version 1)
Quarter: 2021Q3

REPORT INFORMATION
  Report Type: Spontaneous
  Country: US (occurrence: US)
  Receive Date: 20210719
  Receipt Date: 20210719
  Transmission Date: 20211014
  Serious: Yes (Other)
  Sender: FDA-Public Use
  Company Number: None

PATIENT
  Age: 44 Year
  Sex: Female

DRUGS (1)
  1. GLATIRAMER ACETATE PFS 40MG/ML [Suspect]
     Active Substance: GLATIRAMER ACETATE
     Dosage: ?          OTHER FREQUENCY:OTHER;?
     Route: 058
     Dates: start: 201903, end: 202003

REACTIONS (1)
  - Central nervous system lesion [None]

NARRATIVE: CASE EVENT DATE: 20200217
